FAERS Safety Report 7801924-5 (Version None)
Quarter: 2011Q4

REPORT INFORMATION
  Report Type: 
  Country: None (occurrence: None)
  Receive Date: 20111005
  Receipt Date: 20110920
  Transmission Date: 20120403
  Serious: Yes (Hospitalization)
  Sender: FDA-Public Use
  Company Number: 1000018894

PATIENT
  Age: 62 Year
  Sex: Male

DRUGS (9)
  1. LONG ACTING B2 AGONIST (LONG ACTING B2 AGONIST) (LONG ACTING B2 AGONIS [Concomitant]
  2. FLUTICASONE (FLUTICASONE) (FLUTICASONE) [Concomitant]
  3. CORTICOSTEROIDS (CORTICOSTEROIDS) (INHALANT) (CORTICOSTEROIDS) [Concomitant]
  4. CITALOPRAM (CITALOPRAM HYDROBROMIDE) (CITALOPRAM HYDROBROMIDE) [Concomitant]
  5. THEOPHYLLINE [Concomitant]
  6. DEFLAZACORT (DEFLAZACORT) (DEFLAZACORT) [Concomitant]
  7. OXYGEN (OXYGEN) (OXYGEN) [Concomitant]
  8. IPRATROPIUM (IPRATROPIUM) (IPRATROPIUM) [Concomitant]
  9. ROFLUMILAST (ROFLUMILAST) (500 MICROGRAM, TABLETS) [Suspect]
     Indication: CHRONIC OBSTRUCTIVE PULMONARY DISEASE
     Dosage: 500 MCG (500 MCG, 1 IN 1 D), ORAL
     Route: 048
     Dates: start: 20110202, end: 20110204

REACTIONS (15)
  - BRADYPHRENIA [None]
  - GAIT DISTURBANCE [None]
  - RESPIRATORY TRACT INFECTION [None]
  - PO2 DECREASED [None]
  - ASTHENIA [None]
  - ARTHRALGIA [None]
  - URINARY INCONTINENCE [None]
  - DISORIENTATION [None]
  - COGNITIVE DISORDER [None]
  - BLOOD PH DECREASED [None]
  - HYDROCEPHALUS [None]
  - FAECAL INCONTINENCE [None]
  - TREMOR [None]
  - PCO2 INCREASED [None]
  - ABASIA [None]
